FAERS Safety Report 8619662-8 (Version None)
Quarter: 2012Q3

REPORT INFORMATION
  Report Type: 
  Country: None (occurrence: None)
  Receive Date: 20120824
  Receipt Date: 20120823
  Transmission Date: 20120928
  Serious: Yes (Hospitalization, Other)
  Sender: FDA-Public Use
  Company Number: US-JNJFOC-20120517065

PATIENT
  Sex: Female
  Weight: 84.37 kg

DRUGS (3)
  1. LEVAQUIN [Suspect]
     Indication: BRONCHITIS
     Route: 048
     Dates: start: 20120417, end: 20120419
  2. ANTIBIOTICS [Suspect]
     Indication: BRONCHITIS
     Route: 042
     Dates: start: 20120101
  3. REMICADE [Suspect]
     Indication: PRODUCT USED FOR UNKNOWN INDICATION
     Route: 042

REACTIONS (15)
  - COLITIS [None]
  - INSOMNIA [None]
  - GAIT DISTURBANCE [None]
  - ANXIETY [None]
  - TENDONITIS [None]
  - EATING DISORDER [None]
  - DRUG INEFFECTIVE [None]
  - HYPERSENSITIVITY [None]
  - PANIC ATTACK [None]
  - OEDEMA [None]
  - GASTRIC DISORDER [None]
  - PAIN IN EXTREMITY [None]
  - MUSCLE SPASMS [None]
  - ABDOMINAL PAIN UPPER [None]
  - INTENTIONAL DRUG MISUSE [None]
